FAERS Safety Report 18399341 (Version 2)
Quarter: 2020Q4

REPORT INFORMATION
  Report Type: Not Available
  Country: US (occurrence: US)
  Receive Date: 20201019
  Receipt Date: 20201123
  Transmission Date: 20210114
  Serious: Yes (Hospitalization)
  Sender: FDA-Public Use
  Company Number: US-NEUROCRINE BIOSCIENCES INC.-2020NBI03705

PATIENT
  Age: 77 Year
  Sex: Female

DRUGS (1)
  1. INGREZZA [Suspect]
     Active Substance: VALBENAZINE
     Indication: TARDIVE DYSKINESIA
     Route: 048
     Dates: start: 20200709

REACTIONS (4)
  - Cardiac pacemaker insertion [Recovered/Resolved]
  - Heart valve replacement [Recovered/Resolved]
  - Drug ineffective [Unknown]
  - Aortic rupture [Recovered/Resolved]

NARRATIVE: CASE EVENT DATE: 2020
